FAERS Safety Report 9850919 (Version 2)
Quarter: 2014Q1

REPORT INFORMATION
  Report Type: Spontaneous
  Country: FR (occurrence: FR)
  Receive Date: 20140128
  Receipt Date: 20140128
  Transmission Date: 20141002
  Serious: Yes (Other)
  Sender: FDA-Public Use
  Company Number: FR-ABBVIE-13P-056-1124242-00

PATIENT
  Age: 47 Year
  Sex: Female

DRUGS (7)
  1. NORVIR [Suspect]
     Indication: HIV INFECTION
     Route: 048
     Dates: start: 20051115, end: 20110705
  2. NORVIR [Suspect]
     Dates: start: 20111123, end: 20131101
  3. SUSTIVA [Suspect]
     Indication: HIV INFECTION
     Route: 048
     Dates: start: 20110705, end: 20111123
  4. SUSTIVA [Suspect]
     Dates: end: 20131101
  5. TRUVADA [Suspect]
     Indication: HIV INFECTION
     Route: 048
     Dates: start: 20051115
  6. REYATAZ [Suspect]
     Indication: HIV INFECTION
     Route: 048
     Dates: start: 20051115, end: 20110705
  7. REYATAZ [Suspect]
     Dates: start: 20111123, end: 20131101

REACTIONS (7)
  - Carpal tunnel syndrome [Unknown]
  - Hypercholesterolaemia [Recovered/Resolved]
  - Urinary tract infection [Unknown]
  - Sexually transmitted disease [Unknown]
  - Hypercholesterolaemia [Unknown]
  - Amenorrhoea [Unknown]
  - Nervous system disorder [Unknown]
